FAERS Safety Report 15593515 (Version 1)
Quarter: 2018Q4

REPORT INFORMATION
  Report Type: Spontaneous
  Country: CN (occurrence: CN)
  Receive Date: 20181106
  Receipt Date: 20181106
  Transmission Date: 20190205
  Serious: Yes (Hospitalization, Other)
  Sender: FDA-Public Use
  Company Number: CN-PFIZER INC-2018445111

PATIENT
  Age: 44 Year
  Sex: Male
  Weight: 77 kg

DRUGS (14)
  1. DIFLUCAN [Suspect]
     Active Substance: FLUCONAZOLE
     Indication: AORTIC DISSECTION
     Dosage: 0.4 G, 1X/DAY
     Route: 041
     Dates: start: 20180831, end: 20180903
  2. FUROSEMIDE. [Concomitant]
     Active Substance: FUROSEMIDE
     Indication: ESSENTIAL HYPERTENSION
  3. SPIRONOLACTONE. [Concomitant]
     Active Substance: SPIRONOLACTONE
     Indication: AORTIC DISSECTION
     Dosage: 20 MG, 1X/DAY
     Route: 048
     Dates: start: 20180903, end: 20180926
  4. LANSOPRAZOLE. [Suspect]
     Active Substance: LANSOPRAZOLE
     Indication: ESSENTIAL HYPERTENSION
  5. SULPERAZON [Suspect]
     Active Substance: CEFOPERAZONE SODIUM\SULBACTAM SODIUM
     Indication: AORTIC DISSECTION
     Dosage: 3 G, 3X/DAY
     Route: 041
     Dates: start: 20180829, end: 20180918
  6. WARFARIN SODIUM. [Concomitant]
     Active Substance: WARFARIN SODIUM
     Indication: AORTIC DISSECTION
     Dosage: 4.5 MG, 1X/DAY
     Route: 048
     Dates: start: 20180831, end: 20180831
  7. SULPERAZON [Suspect]
     Active Substance: CEFOPERAZONE SODIUM\SULBACTAM SODIUM
     Indication: ESSENTIAL HYPERTENSION
  8. VANCOCIN [Suspect]
     Active Substance: VANCOMYCIN HYDROCHLORIDE
     Indication: ESSENTIAL HYPERTENSION
  9. LANSOPRAZOLE. [Suspect]
     Active Substance: LANSOPRAZOLE
     Indication: AORTIC DISSECTION
     Dosage: 30 MG, 1X/DAY
     Route: 048
     Dates: start: 20180903, end: 20180926
  10. VANCOCIN [Suspect]
     Active Substance: VANCOMYCIN HYDROCHLORIDE
     Indication: AORTIC DISSECTION
     Dosage: 1000 MG, 2X/DAY
     Route: 041
     Dates: start: 20180830, end: 20180918
  11. FUROSEMIDE. [Concomitant]
     Active Substance: FUROSEMIDE
     Indication: AORTIC DISSECTION
     Dosage: 20 MG, 1X/DAY
     Route: 048
     Dates: start: 20180903, end: 20180926
  12. SPIRONOLACTONE. [Concomitant]
     Active Substance: SPIRONOLACTONE
     Indication: ESSENTIAL HYPERTENSION
  13. DIFLUCAN [Suspect]
     Active Substance: FLUCONAZOLE
     Indication: ESSENTIAL HYPERTENSION
  14. WARFARIN SODIUM. [Concomitant]
     Active Substance: WARFARIN SODIUM
     Indication: ESSENTIAL HYPERTENSION

REACTIONS (5)
  - Red blood cell count decreased [Recovering/Resolving]
  - International normalised ratio increased [Recovering/Resolving]
  - Haemoglobin decreased [Recovering/Resolving]
  - Prothrombin time prolonged [Recovering/Resolving]
  - Product use in unapproved indication [Unknown]

NARRATIVE: CASE EVENT DATE: 20180829
